FAERS Safety Report 18176997 (Version 1)
Quarter: 2020Q3

REPORT INFORMATION
  Report Type: Spontaneous
  Country: US (occurrence: US)
  Receive Date: 20200820
  Receipt Date: 20200820
  Transmission Date: 20201103
  Serious: No
  Sender: FDA-Public Use
  Company Number: US-PFIZER INC-2020322933

PATIENT
  Age: 80 Year
  Sex: Female

DRUGS (1)
  1. IBRANCE [Suspect]
     Active Substance: PALBOCICLIB
     Indication: NEOPLASM MALIGNANT
     Dosage: 125 MG, CYCLIC [1C PO [PER ORAL] QD [EVERY DAY] FOR 21 DAYS]
     Route: 048

REACTIONS (3)
  - Amnesia [Unknown]
  - Confusional state [Unknown]
  - Neoplasm progression [Unknown]
